FAERS Safety Report 14704271 (Version 1)
Quarter: 2018Q2

REPORT INFORMATION
  Report Type: Spontaneous
  Country: US (occurrence: US)
  Receive Date: 20180402
  Receipt Date: 20180402
  Transmission Date: 20180711
  Serious: No
  Sender: FDA-Public Use
  Company Number: US-ALLERGAN-1748388US

PATIENT

DRUGS (1)
  1. ASACOL HD [Suspect]
     Active Substance: MESALAMINE
     Indication: PRODUCT USED FOR UNKNOWN INDICATION
     Dosage: 800 MG, TID
     Route: 048

REACTIONS (3)
  - Dysphagia [Unknown]
  - Product size issue [Unknown]
  - Off label use [Unknown]
